FAERS Safety Report 5366440-1 (Version None)
Quarter: 2007Q2

REPORT INFORMATION
  Report Type: 
  Country: None (occurrence: None)
  Receive Date: 20070622
  Receipt Date: 20070614
  Transmission Date: 20071010
  Serious: Yes (Life-Threatening, Hospitalization)
  Sender: FDA-Public Use
  Company Number: BE-JNJFOC-20070603896

PATIENT
  Age: 82 Year
  Sex: Female

DRUGS (6)
  1. REMINYL [Suspect]
     Indication: DEMENTIA ALZHEIMER'S TYPE
     Dosage: ^5 YEARS AGO^
     Route: 048
  2. MARCUMAR [Interacting]
     Indication: DRUG USE FOR UNKNOWN INDICATION
  3. LEVOTHYROXINE SODIUM [Concomitant]
  4. PRAVASTATIN [Concomitant]
  5. CORUNA [Concomitant]
  6. XANAX RETARD [Concomitant]

REACTIONS (6)
  - BLOOD PRESSURE ABNORMAL [None]
  - CEREBROVASCULAR DISORDER [None]
  - COAGULOPATHY [None]
  - DEPRESSED LEVEL OF CONSCIOUSNESS [None]
  - DRUG INTERACTION [None]
  - LABORATORY TEST ABNORMAL [None]
